FAERS Safety Report 12077748 (Version 2)
Quarter: 2016Q1

REPORT INFORMATION
  Report Type: Spontaneous
  Country: JP (occurrence: JP)
  Receive Date: 20160215
  Receipt Date: 20160218
  Transmission Date: 20160526
  Serious: Yes (Death, Other)
  Sender: FDA-Public Use
  Company Number: PHJP2016JP003009

PATIENT
  Age: 64 Year
  Sex: Male

DRUGS (4)
  1. CICLOSPORIN [Suspect]
     Active Substance: CYCLOSPORINE
     Indication: APLASTIC ANAEMIA
  2. PRED//PREDNISOLONE [Concomitant]
     Indication: APLASTIC ANAEMIA
  3. CICLOSPORIN [Suspect]
     Active Substance: CYCLOSPORINE
     Indication: FOCAL SEGMENTAL GLOMERULOSCLEROSIS
     Dosage: UNK
     Route: 048
  4. PRED//PREDNISOLONE [Concomitant]
     Indication: FOCAL SEGMENTAL GLOMERULOSCLEROSIS
     Dosage: UNK
     Route: 065

REACTIONS (8)
  - Condition aggravated [Fatal]
  - Nocardiosis [Unknown]
  - Scedosporium infection [Fatal]
  - Lung infiltration [Fatal]
  - Pyrexia [Unknown]
  - Subcutaneous abscess [Recovering/Resolving]
  - Pulmonary mass [Recovering/Resolving]
  - Product use issue [Unknown]
